FAERS Safety Report 21022352 (Version 2)
Quarter: 2022Q3

REPORT INFORMATION
  Report Type: Spontaneous
  Country: US (occurrence: US)
  Receive Date: 20220629
  Receipt Date: 20220831
  Transmission Date: 20221026
  Serious: Yes (Hospitalization)
  Sender: FDA-Public Use
  Company Number: US-PFIZER INC-PV202200010881

PATIENT
  Age: 72 Year
  Sex: Female
  Weight: 63.5 kg

DRUGS (2)
  1. VFEND [Suspect]
     Active Substance: VORICONAZOLE
     Indication: Aspergillus infection
     Dosage: 200 MG, 2X/DAY (200MG 30-DAY SUPPLY 1 TABLET BY MOUTH 2 TIMES A DAY QTY 60)
     Route: 048
     Dates: start: 202102
  2. VFEND [Suspect]
     Active Substance: VORICONAZOLE
     Indication: Acute myeloid leukaemia

REACTIONS (2)
  - Abdominal pain upper [Unknown]
  - COVID-19 [Unknown]

NARRATIVE: CASE EVENT DATE: 20220801
